FAERS Safety Report 4777994-8 (Version None)
Quarter: 2005Q3

REPORT INFORMATION
  Report Type: 
  Country: None (occurrence: None)
  Receive Date: 20050921
  Receipt Date: 20050901
  Transmission Date: 20060218
  Serious: Yes (Other)
  Sender: FDA-Public Use
  Company Number: CA_050908676

PATIENT
  Age: 18 Year
  Sex: Female

DRUGS (3)
  1. STRATTERA [Suspect]
     Indication: ATTENTION DEFICIT/HYPERACTIVITY DISORDER
     Dosage: 25 MG DAY
     Dates: start: 20050825, end: 20050828
  2. CONCERTA [Concomitant]
  3. CITALOPRAM [Concomitant]

REACTIONS (5)
  - CONSTIPATION [None]
  - LETHARGY [None]
  - SOCIAL AVOIDANT BEHAVIOUR [None]
  - SYNCOPE [None]
  - URINARY RETENTION [None]
